FAERS Safety Report 5911361-6 (Version None)
Quarter: 2008Q4

REPORT INFORMATION
  Report Type: 
  Country: None (occurrence: None)
  Receive Date: 20081007
  Receipt Date: 20080925
  Transmission Date: 20090506
  Serious: Yes (Hospitalization, Other)
  Sender: FDA-Public Use
  Company Number: FR-PFIZER INC-2008044785

PATIENT
  Sex: Female
  Weight: 48 kg

DRUGS (9)
  1. LYRICA [Suspect]
     Indication: NEURALGIA
     Dosage: DAILY DOSE:250MG
     Route: 048
     Dates: start: 20071001
  2. LYRICA [Suspect]
     Indication: POST HERPETIC NEURALGIA
  3. GABAPENTIN [Suspect]
  4. SPIRONOLACTONE [Concomitant]
     Indication: HEPATIC CIRRHOSIS
     Route: 048
  5. ACTONEL [Concomitant]
     Indication: OSTEOPOROSIS
     Route: 048
     Dates: start: 20070301
  6. CALCITE D [Concomitant]
     Indication: OSTEOPOROSIS
  7. TROPICAMIDE [Concomitant]
     Route: 061
  8. DICLOFENAC [Concomitant]
     Route: 061
  9. TOBREX [Concomitant]
     Route: 061

REACTIONS (4)
  - ASCITES [None]
  - CELL DEATH [None]
  - HEPATIC ENCEPHALOPATHY [None]
  - LIVER DISORDER [None]
